FAERS Safety Report 7711804-1 (Version None)
Quarter: 2011Q3

REPORT INFORMATION
  Report Type: 
  Country: None (occurrence: None)
  Receive Date: 20110826
  Receipt Date: 20100707
  Transmission Date: 20111222
  Serious: No
  Sender: FDA-Public Use
  Company Number: US-BAYER-201029056NA

PATIENT
  Age: 43 Year
  Sex: Female

DRUGS (2)
  1. MIRENA [Suspect]
     Indication: CONTRACEPTION
     Dosage: 20 ?G/D, CONT
     Route: 015
     Dates: start: 20100622
  2. LAMICTAL [Concomitant]
     Indication: CONVULSION
     Dosage: UNK

REACTIONS (2)
  - ABDOMINAL DISTENSION [None]
  - DIZZINESS [None]
